FAERS Safety Report 4301551-0 (Version None)
Quarter: 2004Q1

REPORT INFORMATION
  Report Type: 
  Country: None (occurrence: None)
  Receive Date: 20040219
  Receipt Date: 20040202
  Transmission Date: 20041129
  Serious: Yes (Hospitalization)
  Sender: FDA-Public Use
  Company Number: 191745

PATIENT
  Sex: Female

DRUGS (2)
  1. AVONEX [Suspect]
     Indication: MULTIPLE SCLEROSIS
  2. PAXIL [Concomitant]

REACTIONS (6)
  - ANKLE FRACTURE [None]
  - AREFLEXIA [None]
  - ARTHRITIS [None]
  - BURNS FIRST DEGREE [None]
  - CONTUSION [None]
  - HYPOAESTHESIA [None]
